FAERS Safety Report 9247516 (Version 1)
Quarter: 2013Q2

REPORT INFORMATION
  Report Type: Spontaneous
  Country: US (occurrence: US)
  Receive Date: 20130423
  Receipt Date: 20130423
  Transmission Date: 20140414
  Serious: No
  Sender: FDA-Public Use
  Company Number: US-BAYER-2013-050776

PATIENT
  Age: 50 Year
  Sex: Female

DRUGS (1)
  1. AVELOX [Suspect]
     Indication: INFLUENZA
     Dosage: 1 DF, QD
     Route: 048
     Dates: start: 20130314, end: 20130320

REACTIONS (3)
  - Neck pain [Not Recovered/Not Resolved]
  - Headache [Not Recovered/Not Resolved]
  - Musculoskeletal pain [Recovered/Resolved]
